FAERS Safety Report 13266380 (Version 1)
Quarter: 2017Q1

REPORT INFORMATION
  Report Type: Spontaneous
  Country: US (occurrence: US)
  Receive Date: 20170223
  Receipt Date: 20170223
  Transmission Date: 20170428
  Serious: Yes (Other)
  Sender: FDA-Public Use
  Company Number: US-BAUSCH-BL-2017-004074

PATIENT
  Age: 71 Year
  Sex: Male

DRUGS (2)
  1. ADVANCED EYE RELIEF/EYE WASH [Suspect]
     Active Substance: WATER
     Indication: POSTOPERATIVE CARE
     Dosage: PROBABLY USED IT ONCE DAILY
     Route: 047
     Dates: start: 201701
  2. PREDNISOLONE EYE DROPS [Concomitant]
     Indication: POSTOPERATIVE CARE
     Route: 047

REACTIONS (1)
  - Eye haemorrhage [Recovered/Resolved]

NARRATIVE: CASE EVENT DATE: 20170209
